FAERS Safety Report 6692440-5 (Version None)
Quarter: 2010Q2

REPORT INFORMATION
  Report Type: 
  Country: None (occurrence: None)
  Receive Date: 20100422
  Receipt Date: 20100420
  Transmission Date: 20101027
  Serious: Yes (Other)
  Sender: FDA-Public Use
  Company Number: GB-ASTRAZENECA-2010SE17532

PATIENT
  Age: 15 Month
  Sex: Female

DRUGS (1)
  1. EMLA [Suspect]
     Route: 061
     Dates: start: 20100316, end: 20100316

REACTIONS (4)
  - DERMATITIS CONTACT [None]
  - HYPERSENSITIVITY [None]
  - LOCAL REACTION [None]
  - SKIN LESION [None]
